FAERS Safety Report 12464580 (Version 4)
Quarter: 2017Q1

REPORT INFORMATION
  Report Type: Report from Study
  Country: FR (occurrence: FR)
  Receive Date: 20160614
  Receipt Date: 20170117
  Transmission Date: 20170428
  Serious: Yes (Hospitalization)
  Sender: FDA-Public Use
  Company Number: FR-JNJFOC-20160511222

PATIENT
  Age: 41 Year
  Sex: Female
  Weight: 74 kg

DRUGS (5)
  1. TRAMADOL. [Concomitant]
     Active Substance: TRAMADOL
     Dosage: QUARTERLY WEEK
     Route: 065
  2. METHOTREXATE. [Concomitant]
     Active Substance: METHOTREXATE
     Dosage: QUARTERLY WEEK
     Route: 051
  3. SIMPONI [Suspect]
     Active Substance: GOLIMUMAB
     Indication: ANKYLOSING SPONDYLITIS
     Route: 058
     Dates: start: 201512, end: 201605
  4. PARACETAMOL [Concomitant]
     Active Substance: ACETAMINOPHEN
     Route: 065
  5. TRAMADOL. [Concomitant]
     Active Substance: TRAMADOL
     Route: 065

REACTIONS (10)
  - Endometriosis [Recovered/Resolved with Sequelae]
  - Pain [Unknown]
  - Acne [Not Recovered/Not Resolved]
  - Influenza [Unknown]
  - Post procedural haemorrhage [Unknown]
  - Post procedural haemorrhage [Recovered/Resolved with Sequelae]
  - Peritonitis [Recovered/Resolved with Sequelae]
  - Dyspnoea exertional [Not Recovered/Not Resolved]
  - Gastrointestinal disorder postoperative [Unknown]
  - Haemorrhagic anaemia [Recovered/Resolved with Sequelae]

NARRATIVE: CASE EVENT DATE: 2016
